FAERS Safety Report 23803052 (Version 2)
Quarter: 2024Q2

REPORT INFORMATION
  Report Type: Report from Study
  Country: US (occurrence: US)
  Receive Date: 20240501
  Receipt Date: 20240530
  Transmission Date: 20240716
  Serious: Yes (Other)
  Sender: FDA-Public Use
  Company Number: US-SA-SAC20220916001067

PATIENT
  Age: 68 Year
  Sex: Male

DRUGS (1)
  1. AGALSIDASE BETA [Suspect]
     Active Substance: AGALSIDASE BETA
     Indication: Fabry^s disease
     Dosage: 105 IU, QOW
     Route: 042
     Dates: start: 20160824

REACTIONS (11)
  - Prostate cancer [Unknown]
  - Neuropathy peripheral [Unknown]
  - Implantable defibrillator insertion [Unknown]
  - Renal function test abnormal [Recovering/Resolving]
  - Left ventricular hypertrophy [Unknown]
  - Proteinuria [Recovering/Resolving]
  - Albuminuria [Recovering/Resolving]
  - Arthralgia [Recovering/Resolving]
  - Pyrexia [Recovering/Resolving]
  - Headache [Recovering/Resolving]
  - Hypertension [Unknown]

NARRATIVE: CASE EVENT DATE: 20211201
